FAERS Safety Report 20990741 (Version 2)
Quarter: 2022Q3

REPORT INFORMATION
  Report Type: Report from Study
  Country: US (occurrence: US)
  Receive Date: 20220622
  Receipt Date: 20220722
  Transmission Date: 20221027
  Serious: Yes (Disabling, Other)
  Sender: FDA-Public Use
  Company Number: US-REGENERON PHARMACEUTICALS, INC.-2022-48418

PATIENT
  Sex: Male

DRUGS (34)
  1. EYLEA [Suspect]
     Active Substance: AFLIBERCEPT
     Indication: Choroidal neovascularisation
     Dosage: 2 MG, ONCE, RIGHT EYE, INJECTION, STRENGTH-2 MG/0.05 ML
     Dates: start: 20200715, end: 20200715
  2. EYLEA [Suspect]
     Active Substance: AFLIBERCEPT
     Indication: Retinal degeneration
     Dosage: 2 MG, ONCE, RIGHT EYE, INJECTION, SAMPLE EYLEA
     Dates: start: 20200819, end: 20200819
  3. EYLEA [Suspect]
     Active Substance: AFLIBERCEPT
     Dosage: 2 MG, ONCE, RIGHT EYE, INJECTION
     Dates: start: 20200922, end: 20200922
  4. EYLEA [Suspect]
     Active Substance: AFLIBERCEPT
     Dosage: 2 MG, ONCE, RIGHT EYE, INJECTION
     Dates: start: 20201023, end: 20201023
  5. EYLEA [Suspect]
     Active Substance: AFLIBERCEPT
     Dosage: 2 MG, ONCE, RIGHT EYE, INJECTION
     Dates: start: 20201125, end: 20201125
  6. EYLEA [Suspect]
     Active Substance: AFLIBERCEPT
     Dosage: 2 MG, ONCE, RIGHT EYE, INJECTION
     Dates: start: 20201228, end: 20201228
  7. EYLEA [Suspect]
     Active Substance: AFLIBERCEPT
     Dosage: 2 MG, ONCE, RIGHT EYE, INJECTION
     Dates: start: 20210209, end: 20210209
  8. EYLEA [Suspect]
     Active Substance: AFLIBERCEPT
     Dosage: 2 MG, ONCE, RIGHT EYE, INJECTION
     Dates: start: 20210329, end: 20210329
  9. EYLEA [Suspect]
     Active Substance: AFLIBERCEPT
     Dosage: 2 MG, ONCE, RIGHT EYE, INJECTION
     Dates: start: 20210526, end: 20210526
  10. EYLEA [Suspect]
     Active Substance: AFLIBERCEPT
     Dosage: 2 MG, ONCE, RIGHT EYE, INJECTION
     Dates: start: 20210716, end: 20210716
  11. EYLEA [Suspect]
     Active Substance: AFLIBERCEPT
     Dosage: 2 MG, ONCE, RIGHT EYE, INJECTION
     Dates: start: 20210901, end: 20210901
  12. EYLEA [Suspect]
     Active Substance: AFLIBERCEPT
     Dosage: 2 MG, ONCE, RIGHT EYE, INJECTION
     Dates: start: 20211026, end: 20211026
  13. EYLEA [Suspect]
     Active Substance: AFLIBERCEPT
     Dosage: 2 MG, ONCE, RIGHT EYE, INJECTION
     Dates: start: 20211130, end: 20211130
  14. EYLEA [Suspect]
     Active Substance: AFLIBERCEPT
     Dosage: 2 MG, ONCE, RIGHT EYE, INJECTION
     Dates: start: 20220111, end: 20220111
  15. EYLEA [Suspect]
     Active Substance: AFLIBERCEPT
     Dosage: 2 MG, ONCE, RIGHT EYE, INJECTION
     Dates: start: 20220302, end: 20220302
  16. EYLEA [Suspect]
     Active Substance: AFLIBERCEPT
     Dosage: 2 MG, ONCE, RIGHT EYE, INJECTION, SAMPLE EYLEA
     Dates: start: 20220420, end: 20220420
  17. EYLEA [Suspect]
     Active Substance: AFLIBERCEPT
     Dosage: UNK (FORMULATION: VIAL)
     Dates: start: 20220608
  18. OCUVITE [ASCORBIC ACID;BETACAROTENE;COPPER;TOCOFERSOLAN;ZINC] [Concomitant]
     Indication: Product used for unknown indication
     Dosage: 1 TABLET, ONCE DAILY
     Route: 048
  19. ATIVAN [Concomitant]
     Active Substance: LORAZEPAM
     Indication: Product used for unknown indication
     Dosage: 1 MG, EVERY 6 HOURS AS NEEDED
     Route: 048
  20. ARTIFICIAL TEARS [HYPROMELLOSE] [Concomitant]
     Indication: Product used for unknown indication
     Dosage: 1 DROP, DAILY AS NEEDED, BOTH EYES
     Route: 047
  21. PHENYLEPHRINE;TROPICAMIDE [Concomitant]
     Indication: Pupil dilation procedure
     Dosage: 2.5 PERCENT/1 PERCENT
     Route: 047
  22. MINERALS\VITAMINS [Concomitant]
     Active Substance: MINERALS\VITAMINS
     Indication: Product used for unknown indication
     Dosage: UNK UNK, QD
     Route: 048
  23. AVASTIN [Concomitant]
     Active Substance: BEVACIZUMAB
     Indication: Choroidal neovascularisation
     Dosage: 1.25 MG, ONCE, STRENGTH-1.25 MG/0.05 ML, PROLENSA
     Dates: start: 20211130, end: 20211130
  24. AVASTIN [Concomitant]
     Active Substance: BEVACIZUMAB
     Indication: Retinal degeneration
  25. FLOMAX [Concomitant]
     Active Substance: TAMSULOSIN HYDROCHLORIDE
     Indication: Product used for unknown indication
     Dosage: 0.4 MG AT BEDTIME
     Route: 048
     Dates: start: 20201101
  26. DEPAKOTE [Concomitant]
     Active Substance: DIVALPROEX SODIUM
     Indication: Product used for unknown indication
     Dosage: 500 MG, 2 TIMES, DAILY, DELAYED RELEASE EC TABLET
     Route: 048
     Dates: start: 20201002
  27. CHOLECALCIFEROL [Concomitant]
     Active Substance: CHOLECALCIFEROL
     Indication: Product used for unknown indication
     Dosage: 1 TABLET, QD
     Route: 048
  28. DIOVAN HCT [Concomitant]
     Active Substance: HYDROCHLOROTHIAZIDE\VALSARTAN
     Indication: Product used for unknown indication
     Dosage: STRENGTH-320-25 MG, 0.5 TABLET DAILY
     Dates: start: 20200111
  29. LIPITOR [Concomitant]
     Active Substance: ATORVASTATIN CALCIUM
     Indication: Product used for unknown indication
     Dosage: 40 MG, QD
     Route: 048
     Dates: start: 20191213
  30. LAMICTAL [Concomitant]
     Active Substance: LAMOTRIGINE
     Indication: Product used for unknown indication
     Dosage: 150 MG, 2 TIMES DAILY
     Route: 048
     Dates: start: 20191002
  31. REVATIO [Concomitant]
     Active Substance: SILDENAFIL CITRATE
     Indication: Product used for unknown indication
     Dosage: 20 MG, AS NECESSARY
     Dates: start: 20190912
  32. FISH OIL\OMEGA-3 FATTY ACIDS [Concomitant]
     Active Substance: FISH OIL\OMEGA-3 FATTY ACIDS
     Indication: Product used for unknown indication
     Dosage: 1200 MG CAPSULE, DAILY
     Route: 048
  33. LEVAQUIN [Concomitant]
     Active Substance: LEVOFLOXACIN
     Indication: Product used for unknown indication
     Dosage: 500 MG, QD
     Route: 048
     Dates: start: 20190912
  34. PROZAC [Concomitant]
     Active Substance: FLUOXETINE HYDROCHLORIDE
     Indication: Product used for unknown indication
     Dosage: 20 MG, 2 CAPSULES, DAILY
     Route: 048
     Dates: start: 20190829

REACTIONS (7)
  - Blindness unilateral [Not Recovered/Not Resolved]
  - Vitreous detachment [Not Recovered/Not Resolved]
  - Cataract nuclear [Not Recovered/Not Resolved]
  - Off label use [Unknown]
  - Unevaluable event [Not Recovered/Not Resolved]
  - Intraocular pressure decreased [Recovered/Resolved]
  - Scar [Unknown]

NARRATIVE: CASE EVENT DATE: 20200715
